FAERS Safety Report 5124719-2 (Version None)
Quarter: 2006Q4

REPORT INFORMATION
  Report Type: 
  Country: None (occurrence: None)
  Receive Date: 20061006
  Receipt Date: 20061006
  Transmission Date: 20070319
  Serious: Yes (Other)
  Sender: FDA-Public Use
  Company Number: None

PATIENT
  Sex: Female
  Weight: 73.4827 kg

DRUGS (2)
  1. ZOLOFT [Suspect]
     Indication: DEPRESSION
     Dosage: GENERIC ZOLOFT 25MG DAILY PO
     Route: 048
  2. FLUOXETINE [Suspect]
     Dosage: FLUOXETINE 30MG DAILY PO
     Route: 048

REACTIONS (1)
  - SUICIDAL IDEATION [None]
